FAERS Safety Report 6743245-8 (Version None)
Quarter: 2010Q2

REPORT INFORMATION
  Report Type: 
  Country: None (occurrence: None)
  Receive Date: 20100527
  Receipt Date: 20100527
  Transmission Date: 20101027
  Serious: Yes (Life-Threatening, Hospitalization)
  Sender: FDA-Public Use
  Company Number: None

PATIENT
  Age: 19 Month
  Sex: Female
  Weight: 11.3399 kg

DRUGS (2)
  1. CONCENTRATED MOTRIN INFANTS 50 MG PER 1.25 ML MCNEIL [Suspect]
     Indication: PAIN
     Dosage: 1.875 ML AS NEEDED PO
     Route: 048
     Dates: start: 20100419, end: 20100419
  2. CONCENTRATED MOTRIN INFANTS 50 MG PER 1.25 ML MCNEIL [Suspect]
     Indication: PYREXIA
     Dosage: 1.875 ML AS NEEDED PO
     Route: 048
     Dates: start: 20100419, end: 20100419

REACTIONS (3)
  - CYANOSIS [None]
  - PRODUCT QUALITY ISSUE [None]
  - UNRESPONSIVE TO STIMULI [None]
